FAERS Safety Report 5478216-5 (Version None)
Quarter: 2007Q4

REPORT INFORMATION
  Report Type: 
  Country: None (occurrence: None)
  Receive Date: 20071005
  Receipt Date: 20070601
  Transmission Date: 20080405
  Serious: Yes (Disabling)
  Sender: FDA-Public Use
  Company Number: US-BRISTOL-MYERS SQUIBB COMPANY-13768965

PATIENT
  Age: 81 Year
  Sex: Female

DRUGS (7)
  1. AVAPRO [Suspect]
     Indication: HYPERTENSION
     Route: 048
     Dates: start: 20060301, end: 20070101
  2. LISINOPRIL AND HYDROCHLOROTHIAZIDE [Concomitant]
     Dosage: 20/25 MG
     Route: 048
  3. METFORMIN HCL [Concomitant]
     Route: 048
  4. VICODIN [Concomitant]
     Dosage: 5/500 MG ONCE EVERY 4-6 HR PRN
     Route: 048
  5. AVALIDE TABS 300 MG/25 MG [Concomitant]
     Dosage: 300/25 MG
  6. DYNACIRC CR [Concomitant]
     Route: 048
  7. MECLIZINE [Concomitant]
     Route: 048

REACTIONS (1)
  - DYSPNOEA [None]
